FAERS Safety Report 5739645-5 (Version None)
Quarter: 2008Q2

REPORT INFORMATION
  Report Type: 
  Country: None (occurrence: None)
  Receive Date: 20080513
  Receipt Date: 20080222
  Transmission Date: 20081010
  Serious: No
  Sender: FDA-Public Use
  Company Number: DSJ-2008-00911

PATIENT
  Age: 69 Year
  Sex: Male
  Weight: 68.3 kg

DRUGS (5)
  1. OLMESARTAN MEDOXOMIL [Suspect]
     Indication: ESSENTIAL HYPERTENSION
     Dosage: 20 MG (20 MG, 1 IN 1 D), PER ORAL; 40 MG (40 MG, 1 IN 1 D), PER ORAL
     Route: 048
     Dates: start: 20061106, end: 20061203
  2. OLMESARTAN MEDOXOMIL [Suspect]
     Indication: ESSENTIAL HYPERTENSION
     Dosage: 20 MG (20 MG, 1 IN 1 D), PER ORAL; 40 MG (40 MG, 1 IN 1 D), PER ORAL
     Route: 048
     Dates: start: 20061204
  3. IOPAMIRON (IOPAMIDOL) (IOPAMIDOL) [Suspect]
     Dosage: 100 ML (100 ML, 1 IN 1 D) INTRAVENOUS
     Route: 042
     Dates: start: 20070413, end: 20070413
  4. WARFARIN SODIUM [Concomitant]
  5. PLETAAL (CILOSTAZOL) (CILOSTAZOL) [Concomitant]

REACTIONS (2)
  - HEART RATE DECREASED [None]
  - RENAL IMPAIRMENT [None]
